FAERS Safety Report 11570354 (Version 1)
Quarter: 2015Q3

REPORT INFORMATION
  Report Type: Spontaneous
  Country: US (occurrence: US)
  Receive Date: 20150916
  Receipt Date: 20150916
  Transmission Date: 20151125
  Serious: No
  Sender: FDA-Public Use
  Company Number: US-ELI_LILLY_AND_COMPANY-US200909001214

PATIENT
  Age: 65 Year
  Sex: Female

DRUGS (2)
  1. IRON [Concomitant]
     Active Substance: IRON
     Dates: end: 2009
  2. FORTEO [Suspect]
     Active Substance: TERIPARATIDE
     Dosage: 20 UG, DAILY (1/D)
     Dates: start: 200905, end: 200907

REACTIONS (3)
  - Serum ferritin increased [Recovered/Resolved]
  - Hepatic enzyme increased [Recovered/Resolved]
  - Blood iron increased [Recovered/Resolved]

NARRATIVE: CASE EVENT DATE: 200907
